FAERS Safety Report 13282339 (Version 1)
Quarter: 2017Q1

REPORT INFORMATION
  Report Type: Spontaneous
  Country: CH (occurrence: CH)
  Receive Date: 20170301
  Receipt Date: 20170301
  Transmission Date: 20170428
  Serious: Yes (Hospitalization, Other)
  Sender: FDA-Public Use
  Company Number: CH-ASTRAZENECA-2017SE19633

PATIENT
  Age: 21137 Day
  Sex: Male
  Weight: 75.6 kg

DRUGS (11)
  1. CARDURA CR [Concomitant]
     Active Substance: DOXAZOSIN MESYLATE
     Route: 048
  2. CARDURA CR [Concomitant]
     Active Substance: DOXAZOSIN MESYLATE
     Dosage: REDUCED
     Route: 048
  3. ATORVASTATIN [Concomitant]
     Active Substance: ATORVASTATIN
     Route: 048
  4. ZANIDIP [Suspect]
     Active Substance: LERCANIDIPINE HYDROCHLORIDE
     Indication: HYPERTENSION
     Route: 048
     Dates: end: 201612
  5. JANUVIA [Concomitant]
     Active Substance: SITAGLIPTIN PHOSPHATE
     Route: 048
  6. DUODART [Concomitant]
     Active Substance: DUTASTERIDE\TAMSULOSIN
     Route: 048
     Dates: end: 201612
  7. BELOC ZOK [Concomitant]
     Active Substance: METOPROLOL SUCCINATE
     Route: 048
  8. ATACAND [Suspect]
     Active Substance: CANDESARTAN CILEXETIL
     Indication: HYPERTENSION
     Route: 048
     Dates: end: 201612
  9. ASPIRIN CARDIO [Concomitant]
     Active Substance: ASPIRIN
     Route: 048
  10. TORASEMIDE [Concomitant]
     Active Substance: TORSEMIDE
     Route: 048
  11. NOVONORM [Concomitant]
     Active Substance: REPAGLINIDE
     Route: 048
     Dates: end: 201612

REACTIONS (3)
  - Orthostatic hypotension [Recovered/Resolved]
  - General physical health deterioration [Unknown]
  - Dehydration [Unknown]

NARRATIVE: CASE EVENT DATE: 20161210
